FAERS Safety Report 8480383-6 (Version None)
Quarter: 2012Q3

REPORT INFORMATION
  Report Type: 
  Country: None (occurrence: None)
  Receive Date: 20120702
  Receipt Date: 20120622
  Transmission Date: 20120928
  Serious: Yes (Other)
  Sender: FDA-Public Use
  Company Number: CA-ROCHE-1082493

PATIENT
  Sex: Female

DRUGS (14)
  1. XOLAIR [Suspect]
     Dates: start: 20120522
  2. HYDROCHLOROTHIAZIDE [Concomitant]
  3. ADVAIR DISKUS 100/50 [Concomitant]
  4. ZOCOR [Concomitant]
  5. XOLAIR [Suspect]
     Indication: ASTHMA
     Route: 058
     Dates: start: 20120418
  6. COZAAR [Concomitant]
  7. ZYRTEC [Concomitant]
  8. INSULIN [Concomitant]
  9. SIMVASTATIN [Concomitant]
  10. CYMBALTA [Concomitant]
  11. SPIRIVA [Concomitant]
  12. VENTOLIN [Concomitant]
  13. NASONEX [Concomitant]
  14. LOSEC (CANADA) [Concomitant]

REACTIONS (14)
  - THROAT IRRITATION [None]
  - ERYTHEMA [None]
  - CHEST DISCOMFORT [None]
  - EYE PRURITUS [None]
  - PRURITUS GENERALISED [None]
  - INJECTION SITE PAIN [None]
  - ASTHMA [None]
  - LUNG INFECTION [None]
  - FEELING ABNORMAL [None]
  - URTICARIA [None]
  - PRODUCTIVE COUGH [None]
  - FEELING HOT [None]
  - ORAL PRURITUS [None]
  - COUGH [None]
